FAERS Safety Report 9026451 (Version 1)
Quarter: 2013Q1

REPORT INFORMATION
  Report Type: Spontaneous
  Country: US (occurrence: US)
  Receive Date: 20130123
  Receipt Date: 20130123
  Transmission Date: 20140127
  Serious: Yes (Other)
  Sender: FDA-Public Use
  Company Number: US-JNJFOC-20130109290

PATIENT
  Age: 31 Year
  Sex: Female
  Weight: 49.9 kg

DRUGS (3)
  1. LEVAQUIN [Suspect]
     Indication: URINARY TRACT INFECTION
     Dosage: 7 DAY COURSE
     Route: 048
     Dates: start: 20130111
  2. PRENATAL VITAMINS [Concomitant]
     Route: 065
  3. IRON MEDICINE [Concomitant]
     Route: 065

REACTIONS (2)
  - Premature labour [Recovered/Resolved]
  - Exposure during pregnancy [Recovered/Resolved]
